FAERS Safety Report 7802302-5 (Version None)
Quarter: 2011Q4

REPORT INFORMATION
  Report Type: 
  Country: None (occurrence: None)
  Receive Date: 20111007
  Receipt Date: 20110929
  Transmission Date: 20120403
  Serious: Yes (Other)
  Sender: FDA-Public Use
  Company Number: FR-UCBSA-033404

PATIENT
  Age: 75 Year
  Sex: Female

DRUGS (8)
  1. PAROXETINE HCL [Concomitant]
     Dosage: 1 TO 20 MG IN THE MORNING
  2. TRINITRIN PATCH [Concomitant]
  3. BENZODIAZEPINES [Concomitant]
  4. ORNITHINE [Concomitant]
     Dosage: IN THE MORNING AND IN THE EVENING
  5. KEPPRA [Suspect]
     Indication: STATUS EPILEPTICUS
     Dates: end: 20110101
  6. KEPPRA [Suspect]
     Dosage: 500 MG IN MORNING AND 500 MG IN EVENING
     Dates: start: 20110901, end: 20110905
  7. DEPAKENE [Concomitant]
     Dosage: 500 MG IN THE MORNING AND IN THE EVENING
  8. TRIMEPRAZINE TARTRATE [Concomitant]
     Dosage: 4%,15 DROPS IN THE NIGHT

REACTIONS (1)
  - HYPOGLYCAEMIA [None]
